FAERS Safety Report 17846994 (Version 1)
Quarter: 2020Q2

REPORT INFORMATION
  Report Type: Spontaneous
  Country: US (occurrence: US)
  Receive Date: 20200601
  Receipt Date: 20200601
  Transmission Date: 20200714
  Serious: Yes (Disabling, Other)
  Sender: FDA-Public Use
  Company Number: None

PATIENT
  Age: 68 Year
  Sex: Female
  Weight: 49.5 kg

DRUGS (9)
  1. FLONASE SPRAY [Concomitant]
  2. ADDERALL [Concomitant]
     Active Substance: AMPHETAMINE ASPARTATE\AMPHETAMINE SULFATE\DEXTROAMPHETAMINE SACCHARATE\DEXTROAMPHETAMINE SULFATE
  3. LORAZEPAM 0.5 MG [Concomitant]
     Active Substance: LORAZEPAM
  4. YUVAFEM 10 MG [Concomitant]
  5. FLUOXETINE 30 MG [Concomitant]
  6. CALCIUM 750/MAG 375 [Concomitant]
  7. PROLIA [Suspect]
     Active Substance: DENOSUMAB
     Indication: OSTEOPOROSIS
     Route: 058
     Dates: start: 20190729, end: 20200130
  8. FLAXSEED [Concomitant]
     Active Substance: FLAX SEED
  9. VITAMIN D3 [Concomitant]
     Active Substance: CHOLECALCIFEROL

REACTIONS (6)
  - Arthralgia [None]
  - Rash [None]
  - Condition aggravated [None]
  - Back pain [None]
  - Fatigue [None]
  - Arthritis [None]

NARRATIVE: CASE EVENT DATE: 20200215
